FAERS Safety Report 6457117-X (Version None)
Quarter: 2009Q4

REPORT INFORMATION
  Report Type: 
  Country: None (occurrence: None)
  Receive Date: 20091125
  Receipt Date: 20091118
  Transmission Date: 20100525
  Serious: Yes (Other)
  Sender: FDA-Public Use
  Company Number: B0603200A

PATIENT
  Sex: Female

DRUGS (1)
  1. RELENZA [Suspect]
     Indication: INFLUENZA
     Dosage: 10MG TWICE PER DAY
     Route: 055
     Dates: start: 20091106, end: 20091106

REACTIONS (5)
  - ABNORMAL BEHAVIOUR [None]
  - EPILEPSY [None]
  - LOSS OF CONSCIOUSNESS [None]
  - PRESYNCOPE [None]
  - SYNCOPE [None]
